FAERS Safety Report 15548343 (Version 3)
Quarter: 2019Q2

REPORT INFORMATION
  Report Type: Spontaneous
  Country: US (occurrence: US)
  Receive Date: 20181024
  Receipt Date: 20190513
  Transmission Date: 20190711
  Serious: Yes (Other)
  Sender: FDA-Public Use
  Company Number: US-ASTRAZENECA-2018SF37651

PATIENT
  Age: 21159 Day
  Sex: Female
  Weight: 55.3 kg

DRUGS (58)
  1. VAGIFEM [Concomitant]
     Active Substance: ESTRADIOL
     Indication: MENOPAUSE
     Dosage: 10.0UG UNKNOWN
     Dates: start: 201109, end: 201210
  2. LEFLUNOMIDE. [Concomitant]
     Active Substance: LEFLUNOMIDE
  3. CHANTIX [Concomitant]
     Active Substance: VARENICLINE TARTRATE
  4. BUPROPION HYDROCHLORIDE. [Concomitant]
     Active Substance: BUPROPION HYDROCHLORIDE
  5. NITROSTAT [Concomitant]
     Active Substance: NITROGLYCERIN
  6. HYDROCHLOROTHIAZIDE. [Concomitant]
     Active Substance: HYDROCHLOROTHIAZIDE
  7. TIZANIDINE HYDROCHLORIDE. [Concomitant]
     Active Substance: TIZANIDINE HYDROCHLORIDE
  8. ADVAIR HFA [Concomitant]
     Active Substance: FLUTICASONE PROPIONATE\SALMETEROL XINAFOATE
  9. VITAMIN D2 [Concomitant]
     Active Substance: ERGOCALCIFEROL
  10. LYRICA [Concomitant]
     Active Substance: PREGABALIN
  11. ONDANSETRON [Concomitant]
     Active Substance: ONDANSETRON
  12. POTASSIUM CHLORIDE. [Concomitant]
     Active Substance: POTASSIUM CHLORIDE
  13. MEDROXYPROGESTERONE [Concomitant]
     Active Substance: MEDROXYPROGESTERONE
  14. FENOFIBRATE. [Concomitant]
     Active Substance: FENOFIBRATE
     Indication: BLOOD CHOLESTEROL
     Dosage: 200.0MG UNKNOWN
     Dates: start: 201005, end: 201206
  15. FERROUS SULFATE. [Concomitant]
     Active Substance: FERROUS SULFATE
  16. AMOX-CLAV [Concomitant]
     Active Substance: AMOXICILLIN\CLAVULANATE POTASSIUM
  17. ESCITALOPRAM [Concomitant]
     Active Substance: ESCITALOPRAM OXALATE
  18. DEXAMETHASONE. [Concomitant]
     Active Substance: DEXAMETHASONE
  19. FUROSEMIDE. [Concomitant]
     Active Substance: FUROSEMIDE
  20. LEVAQUIN [Concomitant]
     Active Substance: LEVOFLOXACIN
  21. NEXIUM [Suspect]
     Active Substance: ESOMEPRAZOLE MAGNESIUM
     Indication: DYSPEPSIA
     Dosage: 40.0MG UNKNOWN
     Route: 048
     Dates: start: 20070929, end: 20140627
  22. NEXIUM 24HR [Suspect]
     Active Substance: ESOMEPRAZOLE MAGNESIUM
     Indication: DYSPEPSIA
     Route: 048
     Dates: start: 2014
  23. TRAMADOL HYDROCHLORIDE. [Concomitant]
     Active Substance: TRAMADOL HYDROCHLORIDE
     Indication: PAIN
     Dosage: 50.0MG UNKNOWN
     Dates: start: 200804, end: 2016
  24. PREMARIN VAGINAL [Concomitant]
     Active Substance: ESTROGENS, CONJUGATED
  25. HYDROCODONE ACETAMENOPHEN [Concomitant]
  26. ALPRAZOLAM. [Concomitant]
     Active Substance: ALPRAZOLAM
  27. COMBIVENT [Concomitant]
     Active Substance: ALBUTEROL SULFATE\IPRATROPIUM BROMIDE
  28. CHLORDIAZEPOXIDE. [Concomitant]
     Active Substance: CHLORDIAZEPOXIDE
  29. NEXIUM [Suspect]
     Active Substance: ESOMEPRAZOLE MAGNESIUM
     Indication: GASTROOESOPHAGEAL REFLUX DISEASE
     Route: 048
     Dates: start: 2001, end: 2014
  30. NEXIUM [Suspect]
     Active Substance: ESOMEPRAZOLE MAGNESIUM
     Indication: GASTROOESOPHAGEAL REFLUX DISEASE
     Dosage: 40.0MG UNKNOWN
     Route: 048
     Dates: start: 20070929, end: 20140627
  31. ZOLPIDEM TARTRATE. [Concomitant]
     Active Substance: ZOLPIDEM TARTRATE
     Indication: INSOMNIA
     Dates: start: 200710, end: 201711
  32. MINOCYCLINE [Concomitant]
     Active Substance: MINOCYCLINE\MINOCYCLINE HYDROCHLORIDE
     Indication: ANTIBIOTIC THERAPY
     Dosage: 50.0MG UNKNOWN
     Dates: start: 201108, end: 201109
  33. METHOCARBAMOL. [Concomitant]
     Active Substance: METHOCARBAMOL
  34. FLUCONAZOLE. [Concomitant]
     Active Substance: FLUCONAZOLE
  35. TAMIFLU [Concomitant]
     Active Substance: OSELTAMIVIR PHOSPHATE
  36. NEXIUM [Suspect]
     Active Substance: ESOMEPRAZOLE MAGNESIUM
     Indication: DYSPEPSIA
     Route: 048
     Dates: start: 2001, end: 2014
  37. ISOSORBIDE MONONITRATE. [Concomitant]
     Active Substance: ISOSORBIDE MONONITRATE
     Indication: ANGINA PECTORIS
     Dosage: 60.0MG UNKNOWN
     Dates: start: 200807, end: 201704
  38. VICTOZA [Concomitant]
     Active Substance: LIRAGLUTIDE
  39. ATORVASTATIN [Concomitant]
     Active Substance: ATORVASTATIN
  40. HYDROMORPHONE [Concomitant]
     Active Substance: HYDROMORPHONE
  41. METOPROLOL SUCCINATE. [Concomitant]
     Active Substance: METOPROLOL SUCCINATE
     Indication: HYPERTENSION
     Dates: start: 200802, end: 2015
  42. TRIAMCINOLONE [Concomitant]
     Active Substance: TRIAMCINOLONE
  43. ANTARA [Concomitant]
     Active Substance: FENOFIBRATE
  44. PREDNISONE. [Concomitant]
     Active Substance: PREDNISONE
  45. DIAZEPAM. [Concomitant]
     Active Substance: DIAZEPAM
  46. GABAPENTIN. [Concomitant]
     Active Substance: GABAPENTIN
  47. PRILOSEC [Suspect]
     Active Substance: OMEPRAZOLE MAGNESIUM
     Indication: DYSPEPSIA
     Route: 048
     Dates: start: 2001
  48. CRESTOR [Concomitant]
     Active Substance: ROSUVASTATIN CALCIUM
     Indication: BLOOD CHOLESTEROL INCREASED
     Dosage: 20.0MG UNKNOWN
     Dates: start: 200909, end: 201212
  49. MELOXICAM. [Concomitant]
     Active Substance: MELOXICAM
     Indication: RHEUMATOID ARTHRITIS
     Dosage: 15.0MG UNKNOWN
     Dates: start: 201008, end: 201208
  50. RANITIDINE. [Concomitant]
     Active Substance: RANITIDINE
  51. NYSTATIN. [Concomitant]
     Active Substance: NYSTATIN
  52. GLIPIZIDE. [Concomitant]
     Active Substance: GLIPIZIDE
  53. PRILOSEC [Suspect]
     Active Substance: OMEPRAZOLE MAGNESIUM
     Indication: DYSPEPSIA
     Route: 048
     Dates: start: 20010326
  54. PROMETHEGAN [Concomitant]
     Active Substance: PROMETHAZINE HYDROCHLORIDE
  55. DOXYCYCLINE HYCLATE. [Concomitant]
     Active Substance: DOXYCYCLINE HYCLATE
  56. CLONAZEPAM. [Concomitant]
     Active Substance: CLONAZEPAM
  57. SIMVASTATIN. [Concomitant]
     Active Substance: SIMVASTATIN
  58. EFFEXOR XR [Concomitant]
     Active Substance: VENLAFAXINE HYDROCHLORIDE
     Dates: start: 20010426

REACTIONS (2)
  - Chronic kidney disease [Not Recovered/Not Resolved]
  - Acute kidney injury [Unknown]

NARRATIVE: CASE EVENT DATE: 20170331
